FAERS Safety Report 10481302 (Version 1)
Quarter: 2014Q3

REPORT INFORMATION
  Report Type: Spontaneous
  Country: US (occurrence: US)
  Receive Date: 20140929
  Receipt Date: 20140929
  Transmission Date: 20150326
  Serious: Yes (Hospitalization)
  Sender: FDA-Public Use
  Company Number: US-BAYER-2014-141645

PATIENT
  Age: 35 Year
  Sex: Female
  Weight: 78.91 kg

DRUGS (7)
  1. OCELLA [Suspect]
     Active Substance: DROSPIRENONE\ETHINYL ESTRADIOL
     Dosage: UNK
     Dates: start: 20140609
  2. GARCINIA CAMBOGIA COMP [Concomitant]
     Dosage: UNK
     Dates: start: 200405
  3. NEXIUM [Concomitant]
     Active Substance: ESOMEPRAZOLE MAGNESIUM
  4. PANTOPRAZOLE SODIUM [Concomitant]
     Active Substance: PANTOPRAZOLE SODIUM
     Dosage: 40 MG, DAILY WITH DINNER
     Dates: start: 20140422
  5. RIVAROXABAN [Concomitant]
     Active Substance: RIVAROXABAN
  6. YASMIN [Suspect]
     Active Substance: DROSPIRENONE\ETHINYL ESTRADIOL
  7. RANITIDINE [Concomitant]
     Active Substance: RANITIDINE\RANITIDINE HYDROCHLORIDE
     Dosage: 300 MG, HS
     Dates: start: 20140422

REACTIONS (3)
  - Portal vein thrombosis [Recovered/Resolved]
  - Mesenteric vein thrombosis [None]
  - Hepatic haematoma [None]

NARRATIVE: CASE EVENT DATE: 20140626
